FAERS Safety Report 7549703-0 (Version None)
Quarter: 2011Q2

REPORT INFORMATION
  Report Type: 
  Country: None (occurrence: None)
  Receive Date: 20110615
  Receipt Date: 20110613
  Transmission Date: 20111010
  Serious: Yes (Hospitalization)
  Sender: FDA-Public Use
  Company Number: DE-BRISTOL-MYERS SQUIBB COMPANY-15070048

PATIENT
  Age: 79 Year
  Sex: Female

DRUGS (2)
  1. PLACEBO [Suspect]
     Indication: THROMBOSIS PROPHYLAXIS
     Dosage: INTERRUPTED ON 13APR10.RESTARTED ON:27APR10.
     Route: 048
     Dates: start: 20091216
  2. WARFARIN SODIUM [Suspect]
     Indication: THROMBOSIS PROPHYLAXIS
     Dosage: INTERRUPTED ON 13APR10RESTARTED ON:27APR10.
     Route: 048
     Dates: start: 20091216

REACTIONS (1)
  - CONTUSION [None]
